FAERS Safety Report 14558294 (Version 1)
Quarter: 2018Q1

REPORT INFORMATION
  Report Type: Report from Study
  Country: PK (occurrence: PK)
  Receive Date: 20180221
  Receipt Date: 20180221
  Transmission Date: 20180509
  Serious: Yes (Death)
  Sender: FDA-Public Use
  Company Number: PHHY2018PK028952

PATIENT
  Age: 62 Year
  Sex: Male
  Weight: 60 kg

DRUGS (1)
  1. GLIVEC [Suspect]
     Active Substance: IMATINIB MESYLATE
     Indication: GASTROINTESTINAL STROMAL TUMOUR
     Dosage: 800 MG, QD (100 MG, 8 OD)
     Route: 048
     Dates: start: 20150223

REACTIONS (1)
  - Death [Fatal]

NARRATIVE: CASE EVENT DATE: 20170108
